FAERS Safety Report 5374710-6 (Version None)
Quarter: 2007Q2

REPORT INFORMATION
  Report Type: 
  Country: None (occurrence: None)
  Receive Date: 20070621
  Receipt Date: 20070516
  Transmission Date: 20071010
  Serious: Yes (Other)
  Sender: FDA-Public Use
  Company Number: 13782198

PATIENT
  Sex: Female
  Weight: 108.8 kg

DRUGS (9)
  1. EMSAM [Suspect]
     Indication: DEPRESSION
     Dosage: 6 MILLIGRAM,1/1 DAY TD
     Route: 062
  2. HUMIRA [Concomitant]
  3. LUPRON [Concomitant]
  4. AMBIEN [Concomitant]
  5. KLONOPIN [Concomitant]
  6. XOPENEX [Concomitant]
  7. DILAUDID [Concomitant]
  8. CORMAX [Concomitant]
  9. ESTRACE [Concomitant]

REACTIONS (1)
  - DEPRESSION [None]
